FAERS Safety Report 6047691-X (Version None)
Quarter: 2009Q1

REPORT INFORMATION
  Report Type: 
  Country: None (occurrence: None)
  Receive Date: 20090123
  Receipt Date: 20090115
  Transmission Date: 20090719
  Serious: Yes (Hospitalization)
  Sender: FDA-Public Use
  Company Number: FR-JNJFOC-20090102971

PATIENT
  Sex: Male

DRUGS (16)
  1. HALDOL [Suspect]
     Indication: DRUG USE FOR UNKNOWN INDICATION
  2. LASILIX [Suspect]
     Indication: DRUG USE FOR UNKNOWN INDICATION
     Route: 048
  3. VISIPAQUE [Suspect]
     Indication: DRUG USE FOR UNKNOWN INDICATION
     Route: 042
  4. BENERVA [Suspect]
     Indication: DRUG USE FOR UNKNOWN INDICATION
  5. BECILAN [Suspect]
     Indication: DRUG USE FOR UNKNOWN INDICATION
     Route: 048
  6. POTASSIUM CHLORIDE [Suspect]
     Indication: DRUG USE FOR UNKNOWN INDICATION
     Route: 048
  7. LEVEMIR [Suspect]
     Indication: DRUG USE FOR UNKNOWN INDICATION
     Route: 058
  8. SECTRAL [Concomitant]
  9. DOXIUM [Concomitant]
  10. PLAVIX [Concomitant]
  11. AMLOR [Concomitant]
  12. TAHOR [Concomitant]
  13. NEXIUM [Concomitant]
  14. ZESTORETIC [Concomitant]
  15. LANTUS [Concomitant]
  16. NOVORAPID [Concomitant]

REACTIONS (2)
  - DERMATITIS EXFOLIATIVE [None]
  - HYPOTENSION [None]
